FAERS Safety Report 18081401 (Version 2)
Quarter: 2023Q2

REPORT INFORMATION
  Report Type: Spontaneous
  Country: US (occurrence: US)
  Receive Date: 20200728
  Receipt Date: 20230419
  Transmission Date: 20230721
  Serious: Yes (Other)
  Sender: FDA-Public Use
  Company Number: US-GILEAD-2020-0485501

PATIENT
  Age: 63 Year
  Sex: Male

DRUGS (33)
  1. TRUVADA [Suspect]
     Active Substance: EMTRICITABINE\TENOFOVIR DISOPROXIL FUMARATE
     Indication: HIV infection
     Dosage: UNK
     Route: 048
     Dates: start: 2007, end: 2007
  2. TRUVADA [Suspect]
     Active Substance: EMTRICITABINE\TENOFOVIR DISOPROXIL FUMARATE
     Dosage: UNK
     Route: 048
     Dates: start: 2007
  3. VIREAD [Suspect]
     Active Substance: TENOFOVIR DISOPROXIL FUMARATE
     Indication: HIV infection
     Dosage: UNK
     Route: 048
     Dates: start: 2002, end: 2007
  4. ISENTRESS [Concomitant]
     Active Substance: RALTEGRAVIR POTASSIUM
     Indication: HIV infection
  5. NORVIR [Concomitant]
     Active Substance: RITONAVIR
     Indication: HIV infection
  6. PREZISTA [Concomitant]
     Active Substance: DARUNAVIR ETHANOLATE
     Indication: HIV infection
  7. TIVICAY [Concomitant]
     Active Substance: DOLUTEGRAVIR SODIUM
     Indication: HIV infection
  8. ALLOPURINOL [Concomitant]
     Active Substance: ALLOPURINOL
  9. AMLODIPINE [Concomitant]
     Active Substance: AMLODIPINE BESYLATE
  10. AMOXICILLIN [Concomitant]
     Active Substance: AMOXICILLIN
  11. ATORVASTATIN [Concomitant]
     Active Substance: ATORVASTATIN
  12. DICYCLOMINE HYDROCHLORIDE [Concomitant]
     Active Substance: DICYCLOMINE HYDROCHLORIDE
  13. FENOFIBRATE [Concomitant]
     Active Substance: FENOFIBRATE
  14. FLUDROCORTISONE [Concomitant]
     Active Substance: FLUDROCORTISONE
  15. GLIPIZIDE [Concomitant]
     Active Substance: GLIPIZIDE
  16. HYDROCHLOROTHIAZIDE [Concomitant]
     Active Substance: HYDROCHLOROTHIAZIDE
  17. LANTUS [Concomitant]
     Active Substance: INSULIN GLARGINE
  18. LIPITOR [Concomitant]
     Active Substance: ATORVASTATIN CALCIUM
  19. LISINOPRIL [Concomitant]
     Active Substance: LISINOPRIL
  20. LOSARTAN [Concomitant]
     Active Substance: LOSARTAN
  21. MAGNESIUM [Concomitant]
     Active Substance: MAGNESIUM
  22. METFORMIN [Concomitant]
     Active Substance: METFORMIN HYDROCHLORIDE
  23. METOPROLOL [Concomitant]
     Active Substance: METOPROLOL
  24. METRONIDAZOLE [Concomitant]
     Active Substance: METRONIDAZOLE
  25. NIFEDIPINE [Concomitant]
     Active Substance: NIFEDIPINE
  26. .ALPHA.-TOCOPHEROL ACETATE, D-\EVENING PRIMROSE OIL\FISH OIL [Concomitant]
     Active Substance: .ALPHA.-TOCOPHEROL ACETATE, D-\EVENING PRIMROSE OIL\FISH OIL
  27. OMEPRAZOLE [Concomitant]
     Active Substance: OMEPRAZOLE
  28. PHOSPHATASE [Concomitant]
  29. POTASSIUM [Concomitant]
     Active Substance: POTASSIUM
  30. PRANDIN [Concomitant]
     Active Substance: REPAGLINIDE
  31. TOBRAMYCIN [Concomitant]
     Active Substance: TOBRAMYCIN
  32. TRESIBA [Concomitant]
     Active Substance: INSULIN DEGLUDEC
  33. VALCYTE [Concomitant]
     Active Substance: VALGANCICLOVIR HYDROCHLORIDE

REACTIONS (5)
  - End stage renal disease [Not Recovered/Not Resolved]
  - Osteoporosis [Not Recovered/Not Resolved]
  - Nephropathy [Not Recovered/Not Resolved]
  - Pain [Not Recovered/Not Resolved]
  - Emotional distress [Not Recovered/Not Resolved]

NARRATIVE: CASE EVENT DATE: 20080101
